FAERS Safety Report 8567530-2 (Version None)
Quarter: 2012Q3

REPORT INFORMATION
  Report Type: 
  Country: None (occurrence: None)
  Receive Date: 20120803
  Receipt Date: 20120802
  Transmission Date: 20120928
  Serious: Yes (Hospitalization, Other)
  Sender: FDA-Public Use
  Company Number: PHEH2012US013498

PATIENT
  Sex: Male
  Weight: 124.26 kg

DRUGS (5)
  1. TEKTURNA [Suspect]
     Indication: HYPERTENSION
     Dosage: 300 MG, QD
     Route: 048
     Dates: start: 20111001, end: 20120702
  2. TRAMADOL HCL [Concomitant]
     Dosage: 50 MG, Q6H
     Dates: start: 20120419
  3. ALLOPURINOL [Concomitant]
     Dosage: 300 MG, QD
     Route: 048
     Dates: start: 20110620
  4. FOLIC ACID [Concomitant]
     Dosage: 1 MG, BID
     Route: 048
     Dates: start: 20111020
  5. BYSTOLIC [Concomitant]
     Dosage: 20 MG, QD
     Route: 048
     Dates: start: 20110315

REACTIONS (5)
  - GRAND MAL CONVULSION [None]
  - BURNING SENSATION [None]
  - ROAD TRAFFIC ACCIDENT [None]
  - CONTUSION [None]
  - CONVULSION [None]
